FAERS Safety Report 22173733 (Version 1)
Quarter: 2023Q2

REPORT INFORMATION
  Report Type: Spontaneous
  Country: IT (occurrence: IT)
  Receive Date: 20230404
  Receipt Date: 20230404
  Transmission Date: 20230721
  Serious: Yes (Other)
  Sender: FDA-Public Use
  Company Number: IT-MYLANLABS-2023M1035671

PATIENT
  Age: 59 Year
  Sex: Female

DRUGS (5)
  1. PACLITAXEL [Suspect]
     Active Substance: PACLITAXEL
     Indication: Triple negative breast cancer
     Dosage: UNK UNK, QW
     Route: 065
  2. PACLITAXEL [Suspect]
     Active Substance: PACLITAXEL
     Dosage: 90 MILLIGRAM/SQ. METER, ON DAYS 1, 8, 15 EVERY 28 DAYS
     Route: 065
     Dates: start: 202108
  3. CARBOPLATIN [Suspect]
     Active Substance: CARBOPLATIN
     Indication: Triple negative breast cancer
     Dosage: 90 MILLIGRAM/SQ. METER, ON DAYS 1, 8, 15 EVERY 28 DAYS
     Route: 065
     Dates: start: 202108
  4. CYCLOPHOSPHAMIDE [Suspect]
     Active Substance: CYCLOPHOSPHAMIDE
     Indication: Triple negative breast cancer
     Dosage: UNK
     Route: 065
  5. EPIRUBICIN [Suspect]
     Active Substance: EPIRUBICIN
     Indication: Triple negative breast cancer
     Dosage: UNK
     Route: 065

REACTIONS (2)
  - Disease progression [Unknown]
  - Drug ineffective [Unknown]
